FAERS Safety Report 8625349-8 (Version None)
Quarter: 2012Q3

REPORT INFORMATION
  Report Type: 
  Country: None (occurrence: None)
  Receive Date: 20120827
  Receipt Date: 20120824
  Transmission Date: 20120928
  Serious: Yes (Other)
  Sender: FDA-Public Use
  Company Number: US-PFIZER INC-2012208842

PATIENT
  Age: 70 Year
  Sex: Male
  Weight: 94.331 kg

DRUGS (2)
  1. LIPITOR [Suspect]
     Indication: BLOOD CHOLESTEROL ABNORMAL
     Dosage: 20 MG, DAILY
  2. CARDURA [Suspect]
     Indication: CARDIAC DISORDER
     Dosage: 8 MG, DAILY

REACTIONS (2)
  - MYOCARDIAL INFARCTION [None]
  - ANEURYSM [None]
